FAERS Safety Report 15962355 (Version 2)
Quarter: 2019Q1

REPORT INFORMATION
  Report Type: Spontaneous
  Country: BR (occurrence: BR)
  Receive Date: 20190214
  Receipt Date: 20190221
  Transmission Date: 20190417
  Serious: Yes (Hospitalization)
  Sender: FDA-Public Use
  Company Number: BR-PFIZER INC-2019065615

PATIENT
  Age: 71 Year
  Sex: Male

DRUGS (1)
  1. SUTENT [Suspect]
     Active Substance: SUNITINIB MALATE
     Indication: RENAL CANCER METASTATIC
     Dosage: 50 MG, CYCLIC (14 DAYS ON/7 DAYS OFF) / 50 MG, 1 TABLET DAILY (14 DAYS OF USE AND 7 DAYS OFF)
     Dates: start: 20190124, end: 201902

REACTIONS (1)
  - Infection [Unknown]

NARRATIVE: CASE EVENT DATE: 201902
